FAERS Safety Report 10330616 (Version 5)
Quarter: 2014Q4

REPORT INFORMATION
  Report Type: Spontaneous
  Country: JP (occurrence: JP)
  Receive Date: 20140722
  Receipt Date: 20141007
  Transmission Date: 20150528
  Serious: Yes (Disabling, Other)
  Sender: FDA-Public Use
  Company Number: JP-UCBSA-2014006081

PATIENT
  Age: 70 Year
  Sex: Female

DRUGS (8)
  1. NEUPRO [Suspect]
     Active Substance: ROTIGOTINE
     Indication: PARKINSON^S DISEASE
     Dosage: 2 MG, ONCE DAILY (QD)
     Route: 061
     Dates: start: 20130306, end: 20130321
  2. LEVODOPA-CARBIDOPA [Concomitant]
     Active Substance: CARBIDOPA\LEVODOPA
     Dosage: UNK, DAILY DOSE: 400 MG
     Dates: start: 20130625, end: 20140826
  3. BETAMETHASONE W/GENTAMICIN [Concomitant]
     Dosage: UNK, AS NEEDED (PRN)
     Dates: start: 20130625, end: 20140826
  4. NEUPRO [Suspect]
     Active Substance: ROTIGOTINE
     Dosage: 4 MG, ONCE DAILY (QD)
     Route: 061
     Dates: start: 20130322, end: 20130403
  5. NEUPRO [Suspect]
     Active Substance: ROTIGOTINE
     Dosage: 6 MG, ONCE DAILY (QD)
     Route: 061
     Dates: start: 20130404, end: 20130416
  6. NEUPRO [Suspect]
     Active Substance: ROTIGOTINE
     Dosage: 8 MG, ONCE DAILY (QD)
     Route: 061
     Dates: start: 20130417, end: 20140723
  7. ENTACAPONE. [Concomitant]
     Active Substance: ENTACAPONE
     Dosage: DAILY DOSE: 400 MG
     Dates: start: 20130625, end: 20140826
  8. ZOLPIDEM TARTRATE. [Concomitant]
     Active Substance: ZOLPIDEM TARTRATE
     Dosage: UNK, DAILY DOSE: 10 MG
     Dates: start: 20130625, end: 20140826

REACTIONS (1)
  - Gamma-glutamyltransferase increased [Recovering/Resolving]

NARRATIVE: CASE EVENT DATE: 20130502
